FAERS Safety Report 18378151 (Version 1)
Quarter: 2020Q4

REPORT INFORMATION
  Report Type: Spontaneous
  Country: MT (occurrence: MT)
  Receive Date: 20201013
  Receipt Date: 20201013
  Transmission Date: 20210114
  Serious: Yes (Death, Hospitalization)
  Sender: FDA-Public Use
  Company Number: MT-LUPIN PHARMACEUTICALS INC.-2020-06544

PATIENT
  Age: 4 Year
  Sex: Male

DRUGS (11)
  1. CEFTRIAXONE. [Suspect]
     Active Substance: CEFTRIAXONE
     Indication: MENINGOENCEPHALITIS BACTERIAL
     Dosage: UNK
     Route: 065
  2. METRONIDAZOLE. [Suspect]
     Active Substance: METRONIDAZOLE
     Indication: MENINGOENCEPHALITIS BACTERIAL
     Dosage: UNK
     Route: 065
  3. PHENYTOIN SODIUM. [Suspect]
     Active Substance: PHENYTOIN SODIUM
     Indication: MENINGITIS PNEUMOCOCCAL
     Dosage: UNK
     Route: 065
  4. MIDAZOLAM. [Suspect]
     Active Substance: MIDAZOLAM
     Indication: MENINGITIS PNEUMOCOCCAL
  5. MANNITOL. [Suspect]
     Active Substance: MANNITOL
     Indication: STATUS EPILEPTICUS
     Dosage: UNK
     Route: 065
  6. PHENYTOIN SODIUM. [Suspect]
     Active Substance: PHENYTOIN SODIUM
     Indication: STATUS EPILEPTICUS
  7. VANCOMYCIN [Suspect]
     Active Substance: VANCOMYCIN
     Indication: MENINGOENCEPHALITIS BACTERIAL
     Dosage: UNK
     Route: 065
  8. MANNITOL. [Suspect]
     Active Substance: MANNITOL
     Indication: MENINGITIS PNEUMOCOCCAL
  9. CLARITHROMYCIN. [Suspect]
     Active Substance: CLARITHROMYCIN
     Indication: MENINGOENCEPHALITIS BACTERIAL
     Dosage: UNK
     Route: 065
  10. ACICLOVIR [Suspect]
     Active Substance: ACYCLOVIR
     Indication: ANTIVIRAL PROPHYLAXIS
     Dosage: UNK
     Route: 065
  11. MIDAZOLAM. [Suspect]
     Active Substance: MIDAZOLAM
     Indication: STATUS EPILEPTICUS
     Dosage: UNK
     Route: 065

REACTIONS (1)
  - Drug ineffective [Fatal]
